FAERS Safety Report 5936164-8 (Version None)
Quarter: 2008Q4

REPORT INFORMATION
  Report Type: 
  Country: None (occurrence: None)
  Receive Date: 20081028
  Receipt Date: 20081013
  Transmission Date: 20090506
  Serious: Yes (Hospitalization)
  Sender: FDA-Public Use
  Company Number: DSA_32507_2008

PATIENT
  Age: 67 Year
  Sex: Female

DRUGS (11)
  1. ENALAPRIL MALEATE [Suspect]
     Indication: HYPERTENSION
     Dosage: (20 MG QD ORAL), (5 MG QD ORAL)
     Route: 048
     Dates: start: 20070101, end: 20080920
  2. ENALAPRIL MALEATE [Suspect]
     Indication: HYPERTENSION
     Dosage: (20 MG QD ORAL), (5 MG QD ORAL)
     Route: 048
     Dates: start: 20080921
  3. ISOPTIN [Suspect]
     Indication: HYPERTENSION
     Dosage: (200 MG QD ORAL), (80 MG QD ORAL)
     Route: 048
     Dates: start: 20070101, end: 20080920
  4. ISOPTIN [Suspect]
     Indication: HYPERTENSION
     Dosage: (200 MG QD ORAL), (80 MG QD ORAL)
     Route: 048
     Dates: start: 20080921
  5. LANOXIN [Concomitant]
  6. LASIX [Concomitant]
  7. SIVASTIN [Concomitant]
  8. SALMETEROL XINAFOATE [Concomitant]
  9. COUMADIN [Concomitant]
  10. BECLOMETHASONE DIPROPIONATE [Concomitant]
  11. MONTELUKAST SODIUM [Concomitant]

REACTIONS (5)
  - FACE INJURY [None]
  - FALL [None]
  - HYPOTENSION [None]
  - SKELETAL INJURY [None]
  - SYNCOPE [None]
